FAERS Safety Report 7508920-6 (Version None)
Quarter: 2011Q2

REPORT INFORMATION
  Report Type: 
  Country: None (occurrence: None)
  Receive Date: 20110527
  Receipt Date: 20110517
  Transmission Date: 20111010
  Serious: Yes (Congenital Anomaly)
  Sender: FDA-Public Use
  Company Number: DE-TEVA-282128GER

PATIENT
  Age: 0 Year
  Sex: Female
  Weight: 3.56 kg

DRUGS (2)
  1. INDOMETHACIN SODIUM [Suspect]
     Dosage: 150 [MG/D (BIS 75) ]/ 4 TIMES UNTIL WEEK 9, THEN CONTINUOUSLY UNTIL WEEK 22
     Route: 064
     Dates: start: 20091115, end: 20100413
  2. DOPPELHERZ AKTIV FOLSAEURE 800 [Concomitant]
     Dosage: .8 MILLIGRAM;
     Route: 064
     Dates: start: 20100103, end: 20100819

REACTIONS (1)
  - NAEVUS FLAMMEUS [None]
